FAERS Safety Report 18237621 (Version 1)
Quarter: 2020Q3

REPORT INFORMATION
  Report Type: Spontaneous
  Country: US (occurrence: US)
  Receive Date: 20200907
  Receipt Date: 20200907
  Transmission Date: 20201103
  Serious: Yes (Other)
  Sender: FDA-Public Use
  Company Number: US-SA-2020SA236713

PATIENT

DRUGS (1)
  1. DUPIXENT [Suspect]
     Active Substance: DUPILUMAB
     Indication: DERMATITIS ATOPIC
     Route: 058

REACTIONS (6)
  - Dyskinesia [Unknown]
  - Drug ineffective [Unknown]
  - Ophthalmic herpes zoster [Unknown]
  - Eye swelling [Unknown]
  - Herpes zoster infection neurological [Unknown]
  - Herpes zoster [Unknown]
